FAERS Safety Report 7833819-5 (Version None)
Quarter: 2011Q4

REPORT INFORMATION
  Report Type: 
  Country: None (occurrence: None)
  Receive Date: 20111024
  Receipt Date: 20111018
  Transmission Date: 20120403
  Serious: Yes (Hospitalization)
  Sender: FDA-Public Use
  Company Number: US-GLAXOSMITHKLINE-A0937482A

PATIENT
  Age: 45 Year
  Sex: Female

DRUGS (14)
  1. BIOTIN [Concomitant]
  2. FISH OIL [Concomitant]
  3. CRANBERRY [Concomitant]
  4. DICLOFENAC [Concomitant]
  5. ADVAIR DISKUS 100/50 [Suspect]
     Indication: ASTHMA
     Dosage: 1PUFF TWICE PER DAY
     Route: 055
     Dates: start: 20050101
  6. PROVENTIL [Concomitant]
  7. ALPRAZOLAM [Concomitant]
  8. TUSSIONEX [Concomitant]
  9. SEROQUEL [Concomitant]
  10. FLEXERIL [Concomitant]
  11. REQUIP [Suspect]
     Indication: RESTLESS LEGS SYNDROME
     Dosage: .25MG PER DAY
     Route: 048
     Dates: start: 20050701
  12. MULTI-VITAMIN [Concomitant]
  13. COMBIVENT [Concomitant]
  14. PREDNISONE [Concomitant]

REACTIONS (4)
  - STRESS [None]
  - NAUSEA [None]
  - DYSPNOEA [None]
  - HYPOAESTHESIA [None]
